FAERS Safety Report 21092965 (Version 1)
Quarter: 2022Q3

REPORT INFORMATION
  Report Type: Spontaneous
  Country: CN (occurrence: CN)
  Receive Date: 20220718
  Receipt Date: 20220718
  Transmission Date: 20221027
  Serious: Yes (Hospitalization, Other)
  Sender: FDA-Public Use
  Company Number: None

PATIENT
  Age: 10 Year
  Sex: Male
  Weight: 31 kg

DRUGS (7)
  1. CYCLOPHOSPHAMIDE [Suspect]
     Active Substance: CYCLOPHOSPHAMIDE
     Indication: Medulloblastoma
     Dosage: 885.000000MG TWICE DAILY, CYCLOPHOSPHAMIDE WAS DILUTED WITH SODIUM CHLORIDE
     Route: 041
     Dates: start: 20220613, end: 20220614
  2. SODIUM CHLORIDE [Suspect]
     Active Substance: SODIUM CHLORIDE
     Indication: Medication dilution
     Dosage: 250 ML, BID CYCLOPHOSPHAMIDE WAS DILUTED WITH SODIUM CHLORIDE.
     Route: 041
     Dates: start: 20220613, end: 20220614
  3. SODIUM CHLORIDE [Suspect]
     Active Substance: SODIUM CHLORIDE
     Dosage: 20 ML, QD, VINCRISTINE SULFATE DILUTED WITH SODIUM CHLORIDE
     Route: 042
     Dates: start: 20220613, end: 20220613
  4. SODIUM CHLORIDE [Suspect]
     Active Substance: SODIUM CHLORIDE
     Dosage: 250 ML, QD, CISPLATIN (LYOPHILIZED) DILUTED WITH SODIUM CHLORIDE
     Route: 041
     Dates: start: 20220613, end: 20220614
  5. VINCRISTINE SULFATE [Suspect]
     Active Substance: VINCRISTINE SULFATE
     Indication: Medulloblastoma
     Dosage: 1.770000 MG ONCE DAILY, VINCRISTINE SULFATE DILUTED WITH SODIUM CHLORIDE
     Route: 042
     Dates: start: 20220613, end: 20220613
  6. CISPLATIN [Suspect]
     Active Substance: CISPLATIN
     Indication: Medulloblastoma
     Dosage: 40.000000 MG ONCE DAILY, CISPLATIN (LYOPHILIZED) DILUTED WITH SODIUM CHLORIDE.
     Route: 041
     Dates: start: 20220613, end: 20220614
  7. GRANULOCYTE COLONY-STIMULATING FACTOR NOS [Concomitant]
     Active Substance: GRANULOCYTE COLONY-STIMULATING FACTOR NOS
     Indication: Product used for unknown indication
     Dosage: 300 UG, QD
     Route: 058
     Dates: start: 20220615

REACTIONS (1)
  - Myelosuppression [Recovered/Resolved]

NARRATIVE: CASE EVENT DATE: 20220622
